FAERS Safety Report 8855663 (Version 1)
Quarter: 2012Q4

REPORT INFORMATION
  Report Type: Spontaneous
  Country: US (occurrence: None)
  Receive Date: 20121010
  Receipt Date: 20121010
  Transmission Date: 20130627
  Serious: Yes (Hospitalization)
  Sender: FDA-Public Use
  Company Number: None

PATIENT
  Age: 73 Year
  Sex: Male
  Weight: 88 kg

DRUGS (2)
  1. BLEOMYCIN [Suspect]
     Indication: HODGKIN^S LYMPHOMA
  2. CHEMOTHERAPY REGIMEN [Concomitant]

REACTIONS (1)
  - Pneumonitis [None]
